FAERS Safety Report 6752462-2 (Version None)
Quarter: 2010Q2

REPORT INFORMATION
  Report Type: 
  Country: None (occurrence: None)
  Receive Date: 20100601
  Receipt Date: 20100601
  Transmission Date: 20101027
  Serious: Yes (Other)
  Sender: FDA-Public Use
  Company Number: None

PATIENT
  Age: 13 Year
  Sex: Male
  Weight: 50.3493 kg

DRUGS (2)
  1. RISPERIDONE [Suspect]
     Indication: AUTISM
     Dosage: .5 MG. ONCE DAILY, PO; 1 MG. ONCE NIGHTLY, PO
     Route: 048
     Dates: start: 20091110, end: 20100531
  2. RISPERIDONE [Suspect]
     Indication: OBSESSIVE-COMPULSIVE DISORDER
     Dosage: .5 MG. ONCE DAILY, PO; 1 MG. ONCE NIGHTLY, PO
     Route: 048
     Dates: start: 20091110, end: 20100531

REACTIONS (1)
  - DYSPNOEA [None]
